FAERS Safety Report 4611130-3 (Version None)
Quarter: 2005Q1

REPORT INFORMATION
  Report Type: 
  Country: None (occurrence: None)
  Receive Date: 20050317
  Receipt Date: 20050309
  Transmission Date: 20050727
  Serious: Yes (Hospitalization)
  Sender: FDA-Public Use
  Company Number: US-JNJFOC-20050302871

PATIENT
  Sex: Female

DRUGS (20)
  1. NATRECOR [Suspect]
     Route: 042
  2. STARLIX [Concomitant]
     Route: 049
  3. DIGOXIN [Concomitant]
     Route: 049
  4. NITROGLYCERIN [Concomitant]
     Route: 062
  5. XALANTAN [Concomitant]
     Route: 047
  6. BRIMONIDINE [Concomitant]
     Route: 047
  7. ZOLOFT [Concomitant]
     Route: 049
  8. SENOKOT [Concomitant]
     Route: 049
  9. DIOVAN [Concomitant]
     Route: 049
  10. BENADRYL [Concomitant]
     Route: 049
  11. REGULAR HUMULIN [Concomitant]
     Route: 058
  12. ALBUTEROL [Concomitant]
     Route: 055
  13. PROTONIX [Concomitant]
     Route: 049
  14. LASIX [Concomitant]
     Route: 049
  15. TYLENOL (CAPLET) [Concomitant]
     Route: 049
  16. COREG [Concomitant]
     Route: 049
  17. SPIRONOLACTONE [Concomitant]
     Route: 049
  18. PRANDIN [Concomitant]
     Route: 049
  19. MACRODANTIN [Concomitant]
     Route: 049
  20. LANTUS [Concomitant]
     Route: 058

REACTIONS (2)
  - BLOOD GLUCOSE INCREASED [None]
  - PNEUMONIA [None]
